FAERS Safety Report 6087251-8 (Version None)
Quarter: 2009Q1

REPORT INFORMATION
  Report Type: 
  Country: None (occurrence: None)
  Receive Date: 20090219
  Receipt Date: 20090206
  Transmission Date: 20090719
  Serious: Yes (Other)
  Sender: FDA-Public Use
  Company Number: 231396K09USA

PATIENT
  Age: 38 Year
  Sex: Female
  Weight: 94 kg

DRUGS (5)
  1. REBIF [Suspect]
     Indication: MULTIPLE SCLEROSIS
     Dosage: 44 MCG, 3 IN 1 WEEKS, SUBCUTANEOUS
     Route: 058
     Dates: start: 20080206
  2. SOLU-MEDROL [Suspect]
     Dosage: ONCE
     Dates: start: 20081022, end: 20081022
  3. SOLU-MEDROL [Suspect]
     Dosage: ONCE
     Dates: start: 20081115, end: 20081115
  4. GABAPENTIN [Concomitant]
  5. LISINOPRIL [Concomitant]

REACTIONS (1)
  - DIABETES MELLITUS [None]
